FAERS Safety Report 14984117 (Version 1)
Quarter: 2018Q2

REPORT INFORMATION
  Report Type: Spontaneous
  Country: PT (occurrence: PT)
  Receive Date: 20180607
  Receipt Date: 20180607
  Transmission Date: 20180711
  Serious: Yes (Life-Threatening)
  Sender: FDA-Public Use
  Company Number: PT-BAYER-2018-105821

PATIENT
  Age: 53 Year
  Sex: Male
  Weight: 67 kg

DRUGS (1)
  1. GADOVIST [Suspect]
     Active Substance: GADOBUTROL
     Dosage: 6.5 ML, ONCE
     Route: 042
     Dates: start: 20180514, end: 20180514

REACTIONS (2)
  - Chest discomfort [Recovering/Resolving]
  - Aphasia [Recovering/Resolving]

NARRATIVE: CASE EVENT DATE: 20180514
